FAERS Safety Report 6998204-7 (Version None)
Quarter: 2010Q3

REPORT INFORMATION
  Report Type: 
  Country: None (occurrence: None)
  Receive Date: 20100920
  Receipt Date: 20100907
  Transmission Date: 20110219
  Serious: No
  Sender: FDA-Public Use
  Company Number: US-JNJFOC-20100903399

PATIENT
  Sex: Male
  Weight: 122.47 kg

DRUGS (2)
  1. DURAGESIC-100 [Suspect]
     Indication: PAIN
     Dosage: 100 PLUS 100 UG/HR
     Route: 062
  2. UNKNOWN MEDICATION [Concomitant]
     Route: 065

REACTIONS (2)
  - PRODUCT ADHESION ISSUE [None]
  - WRONG TECHNIQUE IN DRUG USAGE PROCESS [None]
